FAERS Safety Report 8367721-X (Version None)
Quarter: 2012Q2

REPORT INFORMATION
  Report Type: 
  Country: None (occurrence: None)
  Receive Date: 20120517
  Receipt Date: 20120510
  Transmission Date: 20120825
  Serious: Yes (Death, Hospitalization)
  Sender: FDA-Public Use
  Company Number: US-GLAXOSMITHKLINE-A0940141A

PATIENT
  Age: 69 Year
  Sex: Female
  Weight: 97.3 kg

DRUGS (10)
  1. PREVACID [Concomitant]
  2. HYDROCHLOROTHIAZIDE [Concomitant]
  3. METOPROLOL [Concomitant]
  4. WELLBUTRIN SR [Concomitant]
  5. AVANDIA [Suspect]
     Indication: DIABETES MELLITUS
     Dosage: 4MG PER DAY
     Route: 048
     Dates: start: 20040101, end: 20070731
  6. LORAZEPAM [Concomitant]
  7. LISINOPRIL [Concomitant]
  8. ZOCOR [Concomitant]
  9. PREMPRO [Concomitant]
  10. LEXAPRO [Concomitant]

REACTIONS (4)
  - CARDIAC FAILURE CONGESTIVE [None]
  - MYOCARDIAL INFARCTION [None]
  - CARDIAC ARREST [None]
  - CARDIAC DEATH [None]
